FAERS Safety Report 7782134-7 (Version None)
Quarter: 2011Q3

REPORT INFORMATION
  Report Type: 
  Country: None (occurrence: None)
  Receive Date: 20110927
  Receipt Date: 20110919
  Transmission Date: 20111222
  Serious: Yes (Hospitalization, Other)
  Sender: FDA-Public Use
  Company Number: US-ELI_LILLY_AND_COMPANY-US201106007533

PATIENT
  Sex: Male
  Weight: 99.32 kg

DRUGS (10)
  1. LIPITOR [Concomitant]
     Dosage: 40 MG, UNKNOWN
     Route: 065
  2. EFFIENT [Suspect]
     Indication: STENT PLACEMENT
     Dosage: 60 MG, LOADING DOSE
     Route: 048
     Dates: start: 20110612
  3. EFFIENT [Suspect]
     Dosage: 10 MG, QD
     Route: 048
  4. LOPRESSOR [Concomitant]
     Dosage: 25 UNK, BID
  5. ADVAIR DISKUS 100/50 [Concomitant]
  6. LEVOTHYROXINE SODIUM [Concomitant]
  7. DIOVAN [Concomitant]
     Dosage: 80 MG, UNKNOWN
     Route: 065
  8. ASPIRIN [Concomitant]
     Dosage: 325 MG, QD
     Route: 065
  9. IMDUR [Concomitant]
     Dosage: 60 MG, UNKNOWN
     Route: 065
  10. GLIMEPIRIDE [Concomitant]

REACTIONS (1)
  - CHOLELITHIASIS OBSTRUCTIVE [None]
